FAERS Safety Report 12214867 (Version 1)
Quarter: 2016Q1

REPORT INFORMATION
  Report Type: Spontaneous
  Country: US (occurrence: US)
  Receive Date: 20160328
  Receipt Date: 20160328
  Transmission Date: 20160526
  Serious: No
  Sender: FDA-Public Use
  Company Number: US-BRACCO-011900

PATIENT
  Age: 59 Year
  Sex: Male
  Weight: 117 kg

DRUGS (1)
  1. GASTROGRAFIN [Suspect]
     Active Substance: DIATRIZOATE MEGLUMINE\DIATRIZOATE SODIUM
     Indication: DIAGNOSTIC PROCEDURE
     Dosage: TWENTY 30 ML BOTTLES MIXED WITH EQUAL PARTS WATER
     Route: 054
     Dates: start: 20150320, end: 20150320

REACTIONS (2)
  - No adverse event [Unknown]
  - Product physical issue [Unknown]

NARRATIVE: CASE EVENT DATE: 20150320
